FAERS Safety Report 10341645 (Version 1)
Quarter: 2014Q3

REPORT INFORMATION
  Report Type: Spontaneous
  Country: BR (occurrence: BR)
  Receive Date: 20140725
  Receipt Date: 20140725
  Transmission Date: 20150326
  Serious: Yes (Other)
  Sender: FDA-Public Use
  Company Number: BR-ROCHE-1438183

PATIENT
  Sex: Male
  Weight: 70 kg

DRUGS (7)
  1. LAMITOR [Suspect]
     Active Substance: LAMOTRIGINE
     Indication: CONVULSION
     Route: 048
  2. DIAZEPAM. [Suspect]
     Active Substance: DIAZEPAM
     Indication: CONVULSION
     Dosage: AS REQUIRED
     Route: 065
  3. TRIMEDAL (ACETAMINOPHEN\ASCORBIC ACID\DIMETHINDENE MALEATE\PHENYLEPHRINE HYDROCHLORIDE\TROXERUTIN) [Suspect]
     Active Substance: ACETAMINOPHEN\ASCORBIC ACID\DIMETHINDENE MALEATE\PHENYLEPHRINE HYDROCHLORIDE\TROXERUTIN
     Indication: CONVULSION
     Route: 048
  4. ETOXIN (BRAZIL) [Suspect]
     Active Substance: ETHOSUXIMIDE
     Indication: CONVULSION
     Route: 048
  5. GARDENAL [Suspect]
     Active Substance: PHENOBARBITAL
     Indication: CONVULSION
     Route: 048
  6. VALIUM [Suspect]
     Active Substance: DIAZEPAM
     Indication: CONVULSION
     Dosage: FREQUENCY: AS REQUIRED
     Route: 042
  7. RIVOTRIL [Suspect]
     Active Substance: CLONAZEPAM
     Indication: CONVULSION
     Dosage: HALF TABLET AT NIGHT (0.5/DAY)
     Route: 048

REACTIONS (4)
  - Convulsion [Not Recovered/Not Resolved]
  - Drug ineffective [Unknown]
  - Fatigue [Unknown]
  - Sluggishness [Unknown]
